FAERS Safety Report 9167054 (Version 1)
Quarter: 2013Q1

REPORT INFORMATION
  Report Type: Spontaneous
  Country: US (occurrence: US)
  Receive Date: 20130318
  Receipt Date: 20130318
  Transmission Date: 20140127
  Serious: No
  Sender: FDA-Public Use
  Company Number: US-009507513-1303USA005951

PATIENT
  Age: 42 Year
  Sex: Male

DRUGS (5)
  1. SAPHRIS [Suspect]
     Indication: BIPOLAR DISORDER
     Dosage: 5 MG, BID
     Route: 060
     Dates: start: 20130219, end: 20130305
  2. BENZTROPINE MESYLATE [Concomitant]
  3. CITALOPRAM [Concomitant]
  4. RISPERIDONE [Concomitant]
  5. LORAZEPAM [Concomitant]

REACTIONS (3)
  - Bipolar disorder [Not Recovered/Not Resolved]
  - Pain in extremity [Not Recovered/Not Resolved]
  - Hypoaesthesia [Not Recovered/Not Resolved]
